FAERS Safety Report 17292720 (Version 1)
Quarter: 2020Q1

REPORT INFORMATION
  Report Type: Spontaneous
  Country: US (occurrence: US)
  Receive Date: 20200119
  Receipt Date: 20200119
  Transmission Date: 20200409
  Serious: Yes (Other)
  Sender: FDA-Public Use
  Company Number: None

PATIENT
  Age: 80 Year
  Sex: Male
  Weight: 81 kg

DRUGS (12)
  1. WARFARIN [Concomitant]
     Active Substance: WARFARIN
  2. CRESTOR [Concomitant]
     Active Substance: ROSUVASTATIN CALCIUM
  3. HCTZ [Concomitant]
     Active Substance: HYDROCHLOROTHIAZIDE
  4. ABIRATERONE. [Suspect]
     Active Substance: ABIRATERONE ACETATE
     Indication: PROSTATE CANCER
     Route: 048
     Dates: start: 20191225, end: 20200118
  5. METOPROLOL. [Concomitant]
     Active Substance: METOPROLOL
  6. MIRTAZAPINE. [Concomitant]
     Active Substance: MIRTAZAPINE
  7. CALCITRIOL. [Concomitant]
     Active Substance: CALCITRIOL
  8. DICLOFENAC [Concomitant]
     Active Substance: DICLOFENAC
  9. PREDNISONE. [Concomitant]
     Active Substance: PREDNISONE
  10. LUPRON [Concomitant]
     Active Substance: LEUPROLIDE ACETATE
  11. LISINOPRIL. [Concomitant]
     Active Substance: LISINOPRIL
  12. LEVOFLOXACIN. [Concomitant]
     Active Substance: LEVOFLOXACIN

REACTIONS (1)
  - Death [None]

NARRATIVE: CASE EVENT DATE: 20200119
